FAERS Safety Report 24344867 (Version 3)
Quarter: 2024Q4

REPORT INFORMATION
  Report Type: Spontaneous
  Country: US (occurrence: US)
  Receive Date: 20240920
  Receipt Date: 20241017
  Transmission Date: 20250115
  Serious: No
  Sender: PFIZER
  Company Number: US-PFIZER INC-202400259837

PATIENT
  Age: 77 Year
  Sex: Female

DRUGS (4)
  1. IBRANCE [Suspect]
     Active Substance: PALBOCICLIB
     Indication: Neoplasm malignant
     Dosage: 100 MG, 3 WEEKS ON THEN 1 WEEK OFF
     Dates: start: 2020
  2. IBRANCE [Suspect]
     Active Substance: PALBOCICLIB
     Dosage: TAKE 21 DAYS OF 28 DAY CYCLE
  3. IBRANCE [Suspect]
     Active Substance: PALBOCICLIB
     Dosage: 75MG, TAKES ONE TABLET A DAY, TAKES FOR 2 WEEKS ON AND THEN 2 WEEKS OFF
     Route: 048
  4. ANASTROZOLE [Concomitant]
     Active Substance: ANASTROZOLE
     Indication: Hormone therapy
     Dosage: 1 TABLET A DAY
     Route: 048
     Dates: start: 2020

REACTIONS (2)
  - White blood cell count decreased [Unknown]
  - Off label use [Unknown]
